FAERS Safety Report 9115565 (Version 1)
Quarter: 2013Q1

REPORT INFORMATION
  Report Type: Spontaneous
  Country: US (occurrence: None)
  Receive Date: 20130221
  Receipt Date: 20130221
  Transmission Date: 20140127
  Serious: Yes (Other)
  Sender: FDA-Public Use
  Company Number: None

PATIENT
  Age: 8 Year
  Sex: Female
  Weight: 28.58 kg

DRUGS (4)
  1. TRILEPTAL (OXCARBAZEPINE 600MG TAB) [Suspect]
     Indication: COMPLEX PARTIAL SEIZURES
     Dosage: 1 TAB PO BID
     Route: 048
     Dates: start: 20130105
  2. TOPAMAX (TOPIRAMATE) [Concomitant]
  3. TOPAMAX (TOPIRAMATE) [Concomitant]
  4. ZARONTIN (ZONISAMIDE) [Concomitant]

REACTIONS (2)
  - Product substitution issue [None]
  - Vomiting [None]
